FAERS Safety Report 20536433 (Version 1)
Quarter: 2022Q1

REPORT INFORMATION
  Report Type: Spontaneous
  Country: CA (occurrence: CA)
  Receive Date: 20220302
  Receipt Date: 20220302
  Transmission Date: 20220424
  Serious: Yes (Other)
  Sender: FDA-Public Use
  Company Number: CA-JNJFOC-20211202699

PATIENT
  Age: 69 Year
  Sex: Male
  Weight: 76 kg

DRUGS (4)
  1. INFLIXIMAB [Suspect]
     Active Substance: INFLIXIMAB
     Indication: Colitis ulcerative
     Route: 042
  2. IRON [Concomitant]
     Active Substance: IRON
  3. IRON [Concomitant]
     Active Substance: IRON
  4. PREDNISONE [Concomitant]
     Active Substance: PREDNISONE

REACTIONS (4)
  - Haemolysis [Unknown]
  - Poor venous access [Unknown]
  - Weight decreased [Unknown]
  - Condition aggravated [Unknown]
